FAERS Safety Report 7598562-9 (Version None)
Quarter: 2011Q3

REPORT INFORMATION
  Report Type: 
  Country: None (occurrence: None)
  Receive Date: 20110708
  Receipt Date: 20110629
  Transmission Date: 20111222
  Serious: Yes (Hospitalization)
  Sender: FDA-Public Use
  Company Number: US-ASTRAZENECA-2011SE38960

PATIENT
  Sex: Female

DRUGS (17)
  1. HYDROXYZINE [Concomitant]
     Indication: AGITATION
  2. COMPAZINE [Concomitant]
     Indication: VOMITING
  3. SEROQUEL [Suspect]
     Indication: STRESS
     Route: 048
     Dates: start: 20040101
  4. VENTOLIN HFA [Concomitant]
     Indication: CHRONIC OBSTRUCTIVE PULMONARY DISEASE
  5. SEROQUEL [Suspect]
     Indication: BIPOLAR DISORDER
     Route: 048
     Dates: start: 20040101
  6. PRILOSEC OTC [Concomitant]
     Indication: GASTROOESOPHAGEAL REFLUX DISEASE
     Route: 048
  7. EXCEDRIN (MIGRAINE) [Concomitant]
     Dosage: PRN
  8. ADVAIR DISKUS 100/50 [Concomitant]
     Indication: CHRONIC OBSTRUCTIVE PULMONARY DISEASE
  9. PRILOSEC OTC [Concomitant]
     Indication: ULCER
     Route: 048
  10. PAXIL [Concomitant]
     Indication: MOOD ALTERED
  11. LOMOTIL [Concomitant]
     Indication: DIARRHOEA
  12. WELLBUTRIN [Concomitant]
     Indication: EX-TOBACCO USER
  13. COMPAZINE [Concomitant]
     Indication: NAUSEA
  14. TOPAMAX [Concomitant]
     Indication: MIGRAINE
  15. NORCO [Concomitant]
     Indication: PAIN
  16. DALMANE [Concomitant]
     Indication: SLEEP DISORDER
  17. DONNATAL [Concomitant]
     Indication: IRRITABLE BOWEL SYNDROME

REACTIONS (2)
  - MENTAL DISORDER [None]
  - DISEASE RECURRENCE [None]
